FAERS Safety Report 4882860-3 (Version None)
Quarter: 2005Q4

REPORT INFORMATION
  Report Type: 
  Country: None (occurrence: None)
  Receive Date: 20051201
  Receipt Date: 20050926
  Transmission Date: 20060501
  Serious: No
  Sender: FDA-Public Use
  Company Number: 2005PV002530

PATIENT
  Age: 60 Year
  Sex: Female
  Weight: 129.2752 kg

DRUGS (4)
  1. BYETTA [Suspect]
     Indication: DIABETES MELLITUS NON-INSULIN-DEPENDENT
     Dosage: 5 MCG;BID;SC
     Route: 058
     Dates: start: 20050923
  2. LANTUS [Concomitant]
  3. HUMULIN [Concomitant]
  4. HUMALOG [Concomitant]

REACTIONS (2)
  - FLATULENCE [None]
  - NAUSEA [None]
